FAERS Safety Report 6911635-6 (Version None)
Quarter: 2010Q3

REPORT INFORMATION
  Report Type: 
  Country: None (occurrence: None)
  Receive Date: 20100806
  Receipt Date: 20100727
  Transmission Date: 20110219
  Serious: Yes (Congenital Anomaly)
  Sender: FDA-Public Use
  Company Number: AR-ABBOTT-10P-007-0659621-00

PATIENT
  Sex: Male

DRUGS (6)
  1. KALETRA [Suspect]
     Indication: DRUG EXPOSURE DURING PREGNANCY
     Route: 064
  2. COMBIVIR [Suspect]
     Indication: DRUG EXPOSURE DURING PREGNANCY
     Route: 064
  3. VIRAMUNE [Suspect]
     Indication: DRUG EXPOSURE DURING PREGNANCY
     Route: 064
  4. VIREAD [Suspect]
     Indication: DRUG EXPOSURE DURING PREGNANCY
     Route: 064
  5. FERROUS SULFATE [Suspect]
     Indication: DRUG EXPOSURE DURING PREGNANCY
     Route: 064
  6. MULTI-VITAMINS [Suspect]
     Indication: DRUG EXPOSURE DURING PREGNANCY
     Route: 064

REACTIONS (2)
  - DRUG EXPOSURE DURING PREGNANCY [None]
  - TALIPES [None]
